FAERS Safety Report 10933938 (Version 1)
Quarter: 2015Q1

REPORT INFORMATION
  Report Type: Spontaneous
  Country: KR (occurrence: None)
  Receive Date: 20150318
  Receipt Date: 20150318
  Transmission Date: 20150721
  Serious: Yes (Death)
  Sender: FDA-Public Use
  Company Number: FK201501235

PATIENT
  Age: 64 Year
  Sex: Female

DRUGS (4)
  1. VINBLASTINE (MANUFACTURER UNKNOWN) (VINBLASTINE SULFATE)  (VINBLASTINE SULFATE) [Suspect]
     Active Substance: VINBLASTINE SULFATE
     Indication: HODGKIN^S DISEASE NODULAR SCLEROSIS STAGE III
  2. BLEOMYCIN [Suspect]
     Active Substance: BLEOMYCIN SULFATE
     Indication: HODGKIN^S DISEASE NODULAR SCLEROSIS STAGE III
  3. DACARBAZINE (MANUFACTURER UNKNOWN) (DACARBAZINE) (DACARBAZINE) [Suspect]
     Active Substance: DACARBAZINE
     Indication: HODGKIN^S DISEASE NODULAR SCLEROSIS STAGE III
  4. DOXORUBICIN (MANUFACTURER UNKNOWN) (DOXORUBICIN HYDROCHLORIDE) (DOXORUBICIN HYDROCHLORIDE) [Suspect]
     Active Substance: DOXORUBICIN
     Indication: HODGKIN^S DISEASE NODULAR SCLEROSIS STAGE III

REACTIONS (2)
  - Disease progression [None]
  - Peripheral T-cell lymphoma unspecified [None]
